FAERS Safety Report 16809163 (Version 1)
Quarter: 2019Q3

REPORT INFORMATION
  Report Type: Spontaneous
  Country: US (occurrence: US)
  Receive Date: 20190916
  Receipt Date: 20190916
  Transmission Date: 20191005
  Serious: Yes (Hospitalization)
  Sender: FDA-Public Use
  Company Number: US-TEVA-2019-US-1108455

PATIENT
  Age: 21 Year
  Sex: Male

DRUGS (1)
  1. DEUTETRABENAZINE 6 MG [Suspect]
     Active Substance: DEUTETRABENAZINE
     Route: 048

REACTIONS (4)
  - Dyskinesia [Recovered/Resolved]
  - Toxic encephalopathy [Recovered/Resolved]
  - Psychomotor hyperactivity [Recovered/Resolved]
  - Overdose [Recovered/Resolved]
